FAERS Safety Report 23356689 (Version 8)
Quarter: 2024Q2

REPORT INFORMATION
  Report Type: Spontaneous
  Country: US (occurrence: US)
  Receive Date: 20240102
  Receipt Date: 20240403
  Transmission Date: 20240716
  Serious: No
  Sender: FDA-Public Use
  Company Number: US-PFIZER INC-PV202300205978

PATIENT
  Age: 55 Year
  Sex: Male
  Weight: 122.47 kg

DRUGS (1)
  1. SOMATROPIN [Suspect]
     Active Substance: SOMATROPIN
     Indication: Hypothalamo-pituitary disorder
     Dosage: 1.2 MG, DAILY
     Route: 058

REACTIONS (5)
  - Muscle mass [Unknown]
  - Muscular weakness [Unknown]
  - Weight increased [Unknown]
  - Muscle atrophy [Unknown]
  - Asthenia [Unknown]
